FAERS Safety Report 8456117-8 (Version None)
Quarter: 2012Q2

REPORT INFORMATION
  Report Type: 
  Country: None (occurrence: None)
  Receive Date: 20120621
  Receipt Date: 20120613
  Transmission Date: 20120825
  Serious: Yes (Hospitalization, Other)
  Sender: FDA-Public Use
  Company Number: PHEH2012US003631

PATIENT
  Sex: Male

DRUGS (2)
  1. GLEEVEC [Suspect]
     Dosage: 600 MG, QD
     Route: 048
     Dates: start: 20110801, end: 20120515
  2. SPRYCEL [Concomitant]

REACTIONS (7)
  - PYREXIA [None]
  - DIARRHOEA [None]
  - LEUKAEMIA RECURRENT [None]
  - PNEUMONIA [None]
  - NAUSEA [None]
  - MUSCLE SPASMS [None]
  - DRUG INEFFECTIVE [None]
